FAERS Safety Report 11756922 (Version 2)
Quarter: 2015Q4

REPORT INFORMATION
  Report Type: Report from Study
  Country: JP (occurrence: JP)
  Receive Date: 20151120
  Receipt Date: 20151211
  Transmission Date: 20160304
  Serious: Yes (Hospitalization, Other)
  Sender: FDA-Public Use
  Company Number: JP-009507513-1510JPN011336

PATIENT
  Age: 51 Year
  Sex: Male
  Weight: 50.4 kg

DRUGS (8)
  1. REBETOL [Suspect]
     Active Substance: RIBAVIRIN
     Indication: HEPATIC CIRRHOSIS
     Dosage: 600 MG, QD
     Route: 048
     Dates: start: 20130816, end: 20131107
  2. LOXONIN [Concomitant]
     Active Substance: LOXOPROFEN SODIUM
     Indication: PROPHYLAXIS
     Dosage: 60 MG, TID (FORMULATION: POR)
     Route: 048
     Dates: start: 20130816, end: 20131107
  3. NEXIUM [Concomitant]
     Active Substance: ESOMEPRAZOLE MAGNESIUM
     Indication: PROPHYLAXIS AGAINST GASTROINTESTINAL ULCER
     Dosage: 20 MG, QD (FORMULATION: POR)
     Route: 048
     Dates: start: 20130816, end: 20131107
  4. PEGINTRON [Suspect]
     Active Substance: PEGINTERFERON ALFA-2B
     Dosage: 50 MICROGRAM, QW
     Route: 058
     Dates: start: 20131129, end: 20131220
  5. PEGINTRON [Suspect]
     Active Substance: PEGINTERFERON ALFA-2B
     Dosage: 25 MICROGRAM, QW
     Route: 058
     Dates: start: 20131227, end: 20131227
  6. REBETOL [Suspect]
     Active Substance: RIBAVIRIN
     Dosage: 600 MG, QD
     Route: 048
     Dates: start: 20131129, end: 20140102
  7. MYSER (DIFLUPREDNATE) [Concomitant]
     Active Substance: DIFLUPREDNATE
     Indication: SKIN EXFOLIATION
     Dosage: DAILY DOSAGE UNKNOWN
     Route: 061
     Dates: end: 20130925
  8. PEGINTRON [Suspect]
     Active Substance: PEGINTERFERON ALFA-2B
     Indication: HEPATIC CIRRHOSIS
     Dosage: 50 MICROGRAM, QW
     Route: 058
     Dates: start: 20130816, end: 20131101

REACTIONS (5)
  - Platelet count decreased [Unknown]
  - Tinea infection [Unknown]
  - Lymphadenitis [Recovering/Resolving]
  - Eczema [Unknown]
  - Skin exfoliation [Unknown]

NARRATIVE: CASE EVENT DATE: 20130920
